FAERS Safety Report 8820967 (Version 3)
Quarter: 2012Q4

REPORT INFORMATION
  Report Type: 
  Country: PT (occurrence: PT)
  Receive Date: 20121002
  Receipt Date: 20121016
  Transmission Date: 20130627
  Serious: Yes (Other)
  Sender: FDA-Public Use
  Company Number: PT-EISAI INC-E2080-00550-SPO-PT

PATIENT
  Age: 19 Year
  Sex: Male
  Weight: 41.7 kg

DRUGS (8)
  1. INOVELON [Suspect]
     Indication: DRUG USE FOR UNKNOWN INDICATION
     Dosage: Unknown
     Route: 048
     Dates: start: 20120726, end: 2012
  2. INOVELON [Suspect]
     Dosage: dose titrated up to 500 mg twice daily over 5 weeks
     Route: 048
     Dates: start: 2012, end: 2012
  3. INOVELON [Suspect]
     Dates: start: 2012, end: 20120926
  4. CASTILIUM [Concomitant]
     Dosage: 5 mg daily
     Route: 048
  5. KEPPRA [Concomitant]
     Dosage: 2000 mg daily
     Route: 048
  6. PHENOBARBITAL [Concomitant]
     Dosage: 150 mg daily
     Route: 048
     Dates: end: 2012
  7. PHENOBARBITAL [Concomitant]
     Dosage: 125 mg daily
     Route: 048
     Dates: start: 2012, end: 2012
  8. PHENOBARBITAL [Concomitant]
     Dosage: 100 mg daily
     Route: 048
     Dates: start: 2012

REACTIONS (2)
  - Weight decreased [Recovering/Resolving]
  - Decreased appetite [Recovering/Resolving]
